FAERS Safety Report 5397811-5 (Version None)
Quarter: 2007Q3

REPORT INFORMATION
  Report Type: 
  Country: None (occurrence: None)
  Receive Date: 20070724
  Receipt Date: 20070724
  Transmission Date: 20080115
  Serious: No
  Sender: FDA-Public Use
  Company Number: None

PATIENT
  Age: 57 Year
  Sex: Female
  Weight: 95 kg

DRUGS (3)
  1. GADODIAMIDE 0.5 MMOL/L GE HEALTHCARE [Suspect]
     Indication: OSTEOMYELITIS
     Dosage: ? 3 SEPARATE DOSES IV BOLUS
     Route: 040
     Dates: start: 20050404, end: 20060321
  2. GADODIAMIDE 0.5 MMOL/L GE HEALTHCARE [Suspect]
     Indication: SYNCOPE
     Dosage: ? 3 SEPARATE DOSES IV BOLUS
     Route: 040
     Dates: start: 20050404, end: 20060321
  3. OMNISCAN [Concomitant]

REACTIONS (4)
  - JOINT STIFFNESS [None]
  - NEPHROGENIC SYSTEMIC FIBROSIS [None]
  - SYNCOPE [None]
  - WHEELCHAIR USER [None]
